FAERS Safety Report 9382518 (Version 1)
Quarter: 2013Q3

REPORT INFORMATION
  Report Type: Spontaneous
  Country: US (occurrence: US)
  Receive Date: 20130703
  Receipt Date: 20130703
  Transmission Date: 20140515
  Serious: No
  Sender: FDA-Public Use
  Company Number: US-BAYER-2013-080071

PATIENT
  Age: 56 Year
  Sex: Female

DRUGS (3)
  1. GADAVIST [Suspect]
     Indication: NUCLEAR MAGNETIC RESONANCE IMAGING SPINAL
     Dosage: 7.9 ML
     Dates: start: 20130627, end: 20130627
  2. GADAVIST [Suspect]
     Indication: BACK PAIN
  3. GADAVIST [Suspect]
     Indication: MUSCLE SPASMS

REACTIONS (4)
  - Throat irritation [None]
  - Cough [None]
  - Pruritus [None]
  - Erythema [None]
